APPROVED DRUG PRODUCT: IVABRADINE HYDROCHLORIDE
Active Ingredient: IVABRADINE HYDROCHLORIDE
Strength: EQ 7.5MG BASE
Dosage Form/Route: TABLET;ORAL
Application: A213483 | Product #002 | TE Code: AB
Applicant: MSN LABORATORIES PRIVATE LTD
Approved: Apr 28, 2025 | RLD: No | RS: No | Type: RX